FAERS Safety Report 4753474-0 (Version None)
Quarter: 2005Q3

REPORT INFORMATION
  Report Type: 
  Country: None (occurrence: None)
  Receive Date: 20050826
  Receipt Date: 20050815
  Transmission Date: 20060218
  Serious: Yes (Death)
  Sender: FDA-Public Use
  Company Number: 2005UW12154

PATIENT
  Age: 27 Year
  Sex: Male
  Weight: 81.6 kg

DRUGS (5)
  1. SEROQUEL [Suspect]
     Indication: BIPOLAR DISORDER
     Dosage: 20 25 MG AND 20 100 MG
     Route: 048
  2. ALCOHOL [Suspect]
  3. WELLBUTRIN [Concomitant]
  4. ZOLOFT [Concomitant]
  5. 4 OTHER ANTIDEPRESSANTS [Concomitant]

REACTIONS (2)
  - COMPLETED SUICIDE [None]
  - SOMNOLENCE [None]
